FAERS Safety Report 17001788 (Version 2)
Quarter: 2021Q2

REPORT INFORMATION
  Report Type: Spontaneous
  Country: CA (occurrence: CA)
  Receive Date: 20191106
  Receipt Date: 20210412
  Transmission Date: 20210716
  Serious: No
  Sender: FDA-Public Use
  Company Number: CA-BEH-2019109018

PATIENT
  Age: 92 Year
  Sex: Male

DRUGS (11)
  1. TAZOCIN [Concomitant]
     Active Substance: PIPERACILLIN SODIUM\TAZOBACTAM SODIUM
     Dosage: 3.375 GRAM, QID
     Route: 042
  2. OXYGEN. [Concomitant]
     Active Substance: OXYGEN
     Dosage: 1
     Dates: start: 20191028
  3. ASA [Concomitant]
     Active Substance: ASPIRIN
     Dosage: 81 MILLIGRAM, DID
  4. AMPICILLIN [Concomitant]
     Active Substance: AMPICILLIN
     Dosage: 1 GRAM, QID
  5. HEPARIN [Concomitant]
     Active Substance: HEPARIN SODIUM
     Dosage: 5000 INTERNATIONAL UNIT, TID
     Route: 058
  6. LASIX [Concomitant]
     Active Substance: FUROSEMIDE
     Dosage: 20 MILLIGRAM, BID
     Route: 042
  7. ALBUREX [Suspect]
     Active Substance: ALBUMIN HUMAN
     Indication: BLOOD VOLUME EXPANSION
     Dosage: 4/4 FRACTION, 100 ML
     Route: 042
     Dates: start: 20191028, end: 20191028
  8. LEVOPHED [Concomitant]
     Active Substance: NOREPINEPHRINE BITARTRATE
     Dosage: 4 MILLIGRAM, ACCORDING TO PROTOCOL
     Route: 042
  9. OXYGEN. [Concomitant]
     Active Substance: OXYGEN
     Dosage: AA
     Dates: start: 20191028
  10. LYRICA [Concomitant]
     Active Substance: PREGABALIN
     Dosage: 75 MILLIGRAM, BID
  11. OXYGEN. [Concomitant]
     Active Substance: OXYGEN
     Dosage: 1 LITER
     Dates: start: 20191028

REACTIONS (3)
  - Chills [Recovered/Resolved]
  - Wheezing [Recovered/Resolved]
  - Dyspnoea [Recovered/Resolved]

NARRATIVE: CASE EVENT DATE: 20191028
